FAERS Safety Report 6996870-3 (Version None)
Quarter: 2010Q3

REPORT INFORMATION
  Report Type: 
  Country: None (occurrence: None)
  Receive Date: 20100918
  Receipt Date: 20090806
  Transmission Date: 20110219
  Serious: No
  Sender: FDA-Public Use
  Company Number: US-WYE-H10517209

PATIENT
  Sex: Female

DRUGS (3)
  1. EFFEXOR XR [Suspect]
     Indication: HOT FLUSH
     Dosage: 37.5 MG EVERY 1 TOT
     Route: 048
     Dates: start: 20090804, end: 20090804
  2. LIPITOR [Concomitant]
  3. CARDIZEM [Concomitant]

REACTIONS (4)
  - DIARRHOEA [None]
  - INSOMNIA [None]
  - NAUSEA [None]
  - RETCHING [None]
